FAERS Safety Report 13691398 (Version 1)
Quarter: 2017Q2

REPORT INFORMATION
  Report Type: Spontaneous
  Country: US (occurrence: US)
  Receive Date: 20170626
  Receipt Date: 20170626
  Transmission Date: 20170830
  Serious: No
  Sender: FDA-Public Use
  Company Number: US-ROCHE-768412

PATIENT
  Sex: Female
  Weight: 53.1 kg

DRUGS (14)
  1. CELLCEPT [Suspect]
     Active Substance: MYCOPHENOLATE MOFETIL\MYCOPHENOLATE MOFETIL HYDROCHLORIDE
     Dosage: SWITCHED BACK FROM MYCOPHENOLATE MOFETIL TO CELLCEPT.
     Route: 048
  2. COZAAR [Concomitant]
     Active Substance: LOSARTAN POTASSIUM
     Route: 065
  3. VICODIN [Concomitant]
     Active Substance: ACETAMINOPHEN\HYDROCODONE BITARTRATE
     Dosage: 5/500 MG AS NEEDED.
     Route: 065
  4. MYCOPHENOLATE MOFETIL. [Suspect]
     Active Substance: MYCOPHENOLATE MOFETIL
     Indication: VASCULITIS
     Dosage: OTHER INDICATIONS:STAGE 2 KIDNEY DISEASE AND RHEUMATOID ARTHRITIS.
     Route: 048
  5. FOLIC ACID. [Concomitant]
     Active Substance: FOLIC ACID
     Route: 065
  6. METHOCARBAMOL. [Concomitant]
     Active Substance: METHOCARBAMOL
     Dosage: AS NEEDED.
     Route: 065
  7. CELLCEPT [Suspect]
     Active Substance: MYCOPHENOLATE MOFETIL\MYCOPHENOLATE MOFETIL HYDROCHLORIDE
     Dosage: INCREASED DOSE BACK TO 1000 MG TWO TIMES PER DAY,AFTER ONE MONTH.
     Route: 048
  8. CELLCEPT [Suspect]
     Active Substance: MYCOPHENOLATE MOFETIL\MYCOPHENOLATE MOFETIL HYDROCHLORIDE
     Dosage: DOSE LOWERED.
     Route: 048
  9. LIPITOR [Concomitant]
     Active Substance: ATORVASTATIN CALCIUM
     Route: 065
  10. NORVASC [Concomitant]
     Active Substance: AMLODIPINE BESYLATE
     Route: 065
  11. CRANBERRY. [Concomitant]
     Active Substance: CRANBERRY
     Route: 065
  12. MILK THISTLE [Concomitant]
     Active Substance: MILK THISTLE
     Route: 065
  13. CELLCEPT [Suspect]
     Active Substance: MYCOPHENOLATE MOFETIL\MYCOPHENOLATE MOFETIL HYDROCHLORIDE
     Indication: VASCULITIS
     Dosage: OTHER INDICATIONS: STAGE 2 KIDNEY DISEASE AND RHEUMATOID ARTHRITIS.
     Route: 048
  14. CITRACAL [Concomitant]
     Active Substance: CALCIUM CITRATE
     Route: 065

REACTIONS (9)
  - Nausea [Unknown]
  - Muscle spasms [Recovered/Resolved]
  - Fatigue [Recovered/Resolved]
  - Musculoskeletal stiffness [Recovered/Resolved]
  - Vomiting [Unknown]
  - Flatulence [Unknown]
  - Myalgia [Recovered/Resolved]
  - Rheumatoid nodule [Not Recovered/Not Resolved]
  - Abdominal distension [Unknown]

NARRATIVE: CASE EVENT DATE: 2006
